FAERS Safety Report 17983133 (Version 2)
Quarter: 2020Q3

REPORT INFORMATION
  Report Type: Spontaneous
  Country: US (occurrence: US)
  Receive Date: 20200706
  Receipt Date: 20200709
  Transmission Date: 20201103
  Serious: No
  Sender: FDA-Public Use
  Company Number: US-PFIZER INC-2020256681

PATIENT
  Age: 56 Year
  Sex: Male
  Weight: 71.67 kg

DRUGS (2)
  1. DULOXETINE. [Concomitant]
     Active Substance: DULOXETINE
     Indication: FIBROMYALGIA
     Dosage: 60 MG, TWICE A DAY
     Route: 048
     Dates: start: 2008
  2. LYRICA [Suspect]
     Active Substance: PREGABALIN
     Indication: FIBROMYALGIA
     Dosage: 225 MG TWICE A DAY
     Route: 048
     Dates: start: 2008, end: 2020

REACTIONS (6)
  - Weight increased [Unknown]
  - Tinnitus [Not Recovered/Not Resolved]
  - Poor quality sleep [Unknown]
  - Hypoaesthesia [Unknown]
  - Memory impairment [Recovered/Resolved]
  - Vision blurred [Recovered/Resolved]
